FAERS Safety Report 7540153-X (Version None)
Quarter: 2011Q2

REPORT INFORMATION
  Report Type: 
  Country: None (occurrence: None)
  Receive Date: 20110610
  Receipt Date: 20110601
  Transmission Date: 20111010
  Serious: Yes (Other)
  Sender: FDA-Public Use
  Company Number: GB-ASTRAZENECA-2011SE33687

PATIENT
  Age: 24 Year
  Sex: Female

DRUGS (4)
  1. QUETIAPINE [Suspect]
     Indication: DEPRESSION
     Route: 048
     Dates: start: 20110301, end: 20110410
  2. DULOXETINE HYDROCHLORIDE [Concomitant]
     Route: 048
  3. QUETIAPINE [Suspect]
     Indication: DECREASED APPETITE
     Route: 048
     Dates: start: 20110301, end: 20110410
  4. DEPO-PROVERA [Concomitant]
     Indication: MENSTRUAL DISORDER
     Route: 030

REACTIONS (1)
  - MENORRHAGIA [None]
